FAERS Safety Report 14482025 (Version 1)
Quarter: 2018Q1

REPORT INFORMATION
  Report Type: Spontaneous
  Country: US (occurrence: US)
  Receive Date: 20180202
  Receipt Date: 20180202
  Transmission Date: 20180509
  Serious: No
  Sender: FDA-Public Use
  Company Number: None

PATIENT
  Age: 6 Year
  Sex: Female
  Weight: 42.3 kg

DRUGS (1)
  1. OSELTAMIVIR 6MG/ML SUSPENSION [Suspect]
     Active Substance: OSELTAMIVIR PHOSPHATE
     Indication: INFLUENZA
     Route: 048

REACTIONS (3)
  - Screaming [None]
  - Abnormal behaviour [None]
  - Abnormal dreams [None]

NARRATIVE: CASE EVENT DATE: 20180129
